FAERS Safety Report 22676989 (Version 5)
Quarter: 2024Q3

REPORT INFORMATION
  Report Type: Report from Study
  Country: CA (occurrence: CA)
  Receive Date: 20230706
  Receipt Date: 20240709
  Transmission Date: 20241017
  Serious: Yes (Other)
  Sender: OTSUKA
  Company Number: CA-OTSUKA-2023_015060

PATIENT
  Sex: Female

DRUGS (1)
  1. ARIPIPRAZOLE [Suspect]
     Active Substance: ARIPIPRAZOLE
     Indication: Product used for unknown indication
     Dosage: 400 MG, EVERY 4 WEEKS (EVERY 28 DAYS)
     Route: 030
     Dates: start: 20220413

REACTIONS (10)
  - Hallucination, auditory [Unknown]
  - Formication [Not Recovered/Not Resolved]
  - Paranoia [Recovered/Resolved with Sequelae]
  - Delusion [Unknown]
  - Depression [Not Recovered/Not Resolved]
  - Anxiety [Recovered/Resolved with Sequelae]
  - Insomnia [Unknown]
  - Tremor [Unknown]
  - Inappropriate schedule of product administration [Unknown]
  - Product dose omission issue [Recovered/Resolved]
